FAERS Safety Report 10713385 (Version 1)
Quarter: 2015Q1

REPORT INFORMATION
  Report Type: Spontaneous
  Country: US (occurrence: US)
  Receive Date: 20150115
  Receipt Date: 20150115
  Transmission Date: 20150721
  Serious: Yes (Hospitalization)
  Sender: FDA-Public Use
  Company Number: US-ACTAVIS-2015-00088

PATIENT
  Sex: Female

DRUGS (5)
  1. MECLIZINE [Concomitant]
     Active Substance: MECLIZINE\MECLIZINE HYDROCHLORIDE
     Indication: PRODUCT USED FOR UNKNOWN INDICATION
     Dosage: UNK, UNKNOWN
     Route: 065
  2. FLUTICASONE [Concomitant]
     Active Substance: FLUTICASONE\FLUTICASONE PROPIONATE
     Indication: PRODUCT USED FOR UNKNOWN INDICATION
     Dosage: UNK, UNKNOWN
     Route: 065
  3. AMLODIPINE [Concomitant]
     Active Substance: AMLODIPINE BESYLATE
     Indication: PRODUCT USED FOR UNKNOWN INDICATION
     Dosage: UNK, UNKNOWN
     Route: 065
  4. FLUOCINOLONE ACETONIDE. [Concomitant]
     Active Substance: FLUOCINOLONE ACETONIDE
     Indication: PRODUCT USED FOR UNKNOWN INDICATION
     Dosage: UNK, UNKNOWN
     Route: 065
  5. METOPROLOL SUCCINATE (ACTAVIS LABORATORIES FL) [Suspect]
     Active Substance: METOPROLOL SUCCINATE
     Indication: PRODUCT USED FOR UNKNOWN INDICATION
     Dosage: 0.5 DF, BID
     Route: 048
     Dates: start: 2010

REACTIONS (18)
  - Nausea [Unknown]
  - Eustachian tube disorder [Unknown]
  - Paraesthesia [Unknown]
  - Hypoaesthesia [Unknown]
  - Peripheral coldness [Unknown]
  - Vision blurred [Unknown]
  - Skin discolouration [Unknown]
  - Weight decreased [Unknown]
  - Nasal congestion [Unknown]
  - Muscular weakness [Unknown]
  - Arthralgia [Unknown]
  - Ear pain [Unknown]
  - Headache [Unknown]
  - Back pain [Unknown]
  - Dizziness [Unknown]
  - Eye disorder [Unknown]
  - Dry eye [Unknown]
  - Unevaluable event [Unknown]
